FAERS Safety Report 7872871-8 (Version None)
Quarter: 2011Q4

REPORT INFORMATION
  Report Type: 
  Country: None (occurrence: None)
  Receive Date: 20111030
  Receipt Date: 20110426
  Transmission Date: 20120403
  Serious: No
  Sender: FDA-Public Use
  Company Number: US-AMGEN-USASP2011021729

PATIENT
  Age: 62 Year
  Sex: Female

DRUGS (1)
  1. ENBREL [Suspect]
     Indication: RHEUMATOID ARTHRITIS
     Dosage: 50 MG, QWK
     Dates: start: 20040614

REACTIONS (5)
  - SPIDER VEIN [None]
  - INJECTION SITE HAEMATOMA [None]
  - JOINT DESTRUCTION [None]
  - MUSCULOSKELETAL PAIN [None]
  - SKIN STRIAE [None]
